FAERS Safety Report 7983691-8 (Version None)
Quarter: 2011Q4

REPORT INFORMATION
  Report Type: 
  Country: None (occurrence: None)
  Receive Date: 20111215
  Receipt Date: 20111206
  Transmission Date: 20120403
  Serious: Yes (Hospitalization, Other)
  Sender: FDA-Public Use
  Company Number: US-MERCK-1108USA00640

PATIENT
  Age: 69 Year
  Sex: Female
  Weight: 64 kg

DRUGS (2)
  1. FOSAMAX [Suspect]
     Indication: OSTEOPOROSIS
     Route: 048
  2. PREDNISONE [Concomitant]
     Route: 065
     Dates: start: 19650101

REACTIONS (20)
  - SINUSITIS [None]
  - LIMB DISCOMFORT [None]
  - BREAST CANCER FEMALE [None]
  - ADVERSE EVENT [None]
  - FEMUR FRACTURE [None]
  - SPINAL COLUMN STENOSIS [None]
  - HYPERTENSION [None]
  - OSTEOARTHRITIS [None]
  - ARTHRITIS [None]
  - EMBOLISM VENOUS [None]
  - BACK PAIN [None]
  - STEROID THERAPY [None]
  - GASTROINTESTINAL HAEMORRHAGE [None]
  - BLOOD CHOLESTEROL DECREASED [None]
  - LACUNAR INFARCTION [None]
  - VENOUS THROMBOSIS [None]
  - HAEMORRHAGIC ANAEMIA [None]
  - FALL [None]
  - STRESS FRACTURE [None]
  - CEREBRAL ATROPHY [None]
